FAERS Safety Report 4647205-2 (Version None)
Quarter: 2005Q2

REPORT INFORMATION
  Report Type: 
  Country: None (occurrence: None)
  Receive Date: 20050426
  Receipt Date: 20050426
  Transmission Date: 20051028
  Serious: Yes (Other)
  Sender: FDA-Public Use
  Company Number: None

PATIENT
  Sex: Female
  Weight: 109.5 kg

DRUGS (1)
  1. INTERFERON-ALPHA [Suspect]
     Indication: RENAL CELL CARCINOMA STAGE UNSPECIFIED
     Dosage: 9.0 MU SC 3X/WEEK.  CYCLE=4 WEEKS
     Route: 058
     Dates: start: 20050321

REACTIONS (2)
  - PAIN [None]
  - PATHOLOGICAL FRACTURE [None]
